FAERS Safety Report 10215747 (Version 1)
Quarter: 2014Q2

REPORT INFORMATION
  Report Type: Spontaneous
  Country: US (occurrence: None)
  Receive Date: 20140520
  Receipt Date: 20140520
  Transmission Date: 20141212
  Serious: Yes (Death)
  Sender: FDA-Public Use
  Company Number: GBI002299

PATIENT
  Age: 78 Year
  Sex: Female

DRUGS (1)
  1. PROFILNINE SD [Suspect]
     Indication: POST PROCEDURAL HAEMORRHAGE
     Route: 042
     Dates: start: 20130404, end: 20130404

REACTIONS (2)
  - Poor peripheral circulation [None]
  - Thrombosis in device [None]
